FAERS Safety Report 9680098 (Version 2)
Quarter: 2013Q4

REPORT INFORMATION
  Report Type: Spontaneous
  Country: US (occurrence: US)
  Receive Date: 20131111
  Receipt Date: 20131112
  Transmission Date: 20140711
  Serious: No
  Sender: FDA-Public Use
  Company Number: US-009507513-1311USA003455

PATIENT
  Age: 17 Year
  Sex: Male

DRUGS (1)
  1. DULERA [Suspect]
     Dosage: TWO PUFFS, BID
     Route: 055

REACTIONS (4)
  - Abdominal pain upper [Not Recovered/Not Resolved]
  - Nasal discomfort [Not Recovered/Not Resolved]
  - Headache [Not Recovered/Not Resolved]
  - Nausea [Not Recovered/Not Resolved]
